FAERS Safety Report 21148198 (Version 1)
Quarter: 2022Q3

REPORT INFORMATION
  Report Type: Spontaneous
  Country: US (occurrence: US)
  Receive Date: 20220729
  Receipt Date: 20220729
  Transmission Date: 20221027
  Serious: No
  Sender: FDA-Public Use
  Company Number: US-BRISTOL-MYERS SQUIBB COMPANY-2022-072902

PATIENT
  Age: 68 Year
  Sex: Female
  Weight: 65 kg

DRUGS (1)
  1. LENALIDOMIDE [Suspect]
     Active Substance: LENALIDOMIDE
     Indication: Product used for unknown indication
     Dosage: FREQ : DAILY, 21 DAYS ON AND 7 DAYS OFF
     Route: 048

REACTIONS (2)
  - Cough [Unknown]
  - Rhinorrhoea [Unknown]
